FAERS Safety Report 26179936 (Version 1)
Quarter: 2025Q4

REPORT INFORMATION
  Report Type: Report from Study
  Country: US (occurrence: US)
  Receive Date: 20251219
  Receipt Date: 20251219
  Transmission Date: 20260117
  Serious: No
  Sender: DR REDDYS
  Company Number: US-DRL-USA-USA/2025/11/018203

PATIENT

DRUGS (2)
  1. ZENATANE [Suspect]
     Active Substance: ISOTRETINOIN
     Indication: Product used for unknown indication
     Dosage: NDC NUMBER- 55111-0113-81
  2. ZENATANE [Suspect]
     Active Substance: ISOTRETINOIN
     Dosage: NDC NUMBER- 55111-0137-81

REACTIONS (3)
  - Nausea [Unknown]
  - Diarrhoea [Unknown]
  - Flatulence [Unknown]
